APPROVED DRUG PRODUCT: ECONAZOLE NITRATE
Active Ingredient: ECONAZOLE NITRATE
Strength: 1%
Dosage Form/Route: CREAM;TOPICAL
Application: A076075 | Product #001
Applicant: CHARTWELL RX SCIENCES LLC
Approved: Nov 26, 2002 | RLD: No | RS: No | Type: DISCN